FAERS Safety Report 23167279 (Version 3)
Quarter: 2024Q3

REPORT INFORMATION
  Report Type: Spontaneous
  Country: IT (occurrence: IT)
  Receive Date: 20231109
  Receipt Date: 20240809
  Transmission Date: 20241016
  Serious: Yes (Life-Threatening, Other)
  Sender: MYLAN
  Company Number: IT-COOP-100-18

PATIENT
  Age: 38 Week
  Sex: Female

DRUGS (2)
  1. ACETAMINOPHEN [Suspect]
     Active Substance: ACETAMINOPHEN
     Indication: Pain
     Dosage: 3000 MILLIGRAM, QD
     Route: 064
  2. ACETAMINOPHEN [Suspect]
     Active Substance: ACETAMINOPHEN
     Indication: Analgesic therapy

REACTIONS (10)
  - Cardiomyopathy neonatal [Recovering/Resolving]
  - Patent ductus arteriosus [Unknown]
  - Right ventricular dysfunction [Unknown]
  - Neonatal respiratory distress syndrome [Recovered/Resolved]
  - Pulmonary artery stenosis [Unknown]
  - Drug interaction [Unknown]
  - Food interaction [Unknown]
  - Foetal exposure during pregnancy [Unknown]
  - Aspartate aminotransferase increased [Unknown]
  - Troponin increased [Unknown]
